FAERS Safety Report 6983801-5 (Version None)
Quarter: 2010Q3

REPORT INFORMATION
  Report Type: 
  Country: None (occurrence: None)
  Receive Date: 20100914
  Receipt Date: 20090305
  Transmission Date: 20110219
  Serious: No
  Sender: FDA-Public Use
  Company Number: US-WYE-H08022809

PATIENT
  Sex: Female

DRUGS (1)
  1. TORISEL [Suspect]
     Dosage: SMALL AMOUNT OF RECONSTITUTED TORISEL (25 MG RECONSTITUTED WITH 1.8 ML DILUENT)
     Route: 047
     Dates: start: 20090202, end: 20090202

REACTIONS (2)
  - ACCIDENTAL EXPOSURE [None]
  - EYE IRRITATION [None]
